FAERS Safety Report 12966231 (Version 2)
Quarter: 2016Q4

REPORT INFORMATION
  Report Type: Report from Study
  Country: US (occurrence: US)
  Receive Date: 20161122
  Receipt Date: 20161201
  Transmission Date: 20170207
  Serious: Yes (Death, Hospitalization)
  Sender: FDA-Public Use
  Company Number: US-ACTELION-A-US2016-145944

PATIENT
  Age: 11 Month
  Sex: Female

DRUGS (10)
  1. SYNTHROID [Concomitant]
     Active Substance: LEVOTHYROXINE SODIUM
     Dosage: 37.5 UNK, UNK
     Dates: start: 20161111
  2. DIURIL [Concomitant]
     Active Substance: CHLOROTHIAZIDE
     Dosage: 32 MG, Q12HRS
     Dates: start: 20161111
  3. KEPPRA [Concomitant]
     Active Substance: LEVETIRACETAM
     Dosage: 180 MG, Q12HRS
     Dates: start: 20161024
  4. TRACLEER [Suspect]
     Active Substance: BOSENTAN
     Indication: PULMONARY ARTERIAL HYPERTENSION
     Dosage: 15.6 MG, BID
     Route: 048
     Dates: start: 20161116, end: 20161120
  5. SYNAGIS [Concomitant]
     Active Substance: PALIVIZUMAB
  6. ZANTAC [Concomitant]
     Active Substance: RANITIDINE HYDROCHLORIDE
  7. LASIX [Concomitant]
     Active Substance: FUROSEMIDE
     Dosage: 6.4 MG, Q6HRS
     Dates: start: 20161111
  8. QVAR [Concomitant]
     Active Substance: BECLOMETHASONE DIPROPIONATE
     Dosage: 2 PUFF, BID
     Dates: start: 20161111
  9. MVI [Concomitant]
     Active Substance: VITAMINS
  10. SILDENAFIL. [Concomitant]
     Active Substance: SILDENAFIL
     Dosage: 6 MG, TID
     Dates: start: 20160528

REACTIONS (1)
  - Respiratory failure [Fatal]
